FAERS Safety Report 4579852-0 (Version None)
Quarter: 2005Q1

REPORT INFORMATION
  Report Type: 
  Country: None (occurrence: None)
  Receive Date: 20050210
  Receipt Date: 20050210
  Transmission Date: 20050727
  Serious: No
  Sender: FDA-Public Use
  Company Number: None

PATIENT
  Sex: Male
  Weight: 69.2 kg

DRUGS (5)
  1. CYTARABINE [Suspect]
     Dosage: 100 MG/M2/DAY BY CIV ON DAYS 1-7
     Route: 042
  2. DAUNORUBICIN HCL [Suspect]
     Dosage: SEE IMAGE
     Route: 042
  3. CYTARABINE [Suspect]
     Dosage: 100MG/M2/DAY CIV ON DAYS 1-5
     Route: 042
  4. DAUNORUBICIN HCL [Suspect]
     Dosage: 60 MG/M2 DAY IVP ON DAYS 1-2
     Route: 042
  5. CYTARABINE [Suspect]
     Dosage: 2000MG/M2/DAY IV OVER 3 HOURS ON DAYS 1-5
     Route: 042

REACTIONS (5)
  - ATRIAL FIBRILLATION [None]
  - ATRIAL TACHYCARDIA [None]
  - HAEMATOCRIT DECREASED [None]
  - HAEMOGLOBIN DECREASED [None]
  - SINUS TACHYCARDIA [None]
